FAERS Safety Report 17144613 (Version 1)
Quarter: 2019Q4

REPORT INFORMATION
  Report Type: Spontaneous
  Country: GB (occurrence: GB)
  Receive Date: 20191212
  Receipt Date: 20191212
  Transmission Date: 20200122
  Serious: Yes (Hospitalization)
  Sender: FDA-Public Use
  Company Number: GB-EISAI MEDICAL RESEARCH-EC-2019-066815

PATIENT
  Age: 71 Year
  Sex: Male

DRUGS (2)
  1. DONEPEZIL. [Suspect]
     Active Substance: DONEPEZIL
     Dosage: DOSE REDUCED
     Route: 048
  2. DONEPEZIL. [Suspect]
     Active Substance: DONEPEZIL
     Indication: HIV-ASSOCIATED NEUROCOGNITIVE DISORDER
     Route: 048

REACTIONS (2)
  - Product prescribing error [Recovered/Resolved with Sequelae]
  - Gastrointestinal ulcer [Recovered/Resolved with Sequelae]
